FAERS Safety Report 6181108-X (Version None)
Quarter: 2009Q2

REPORT INFORMATION
  Report Type: 
  Country: None (occurrence: None)
  Receive Date: 20090501
  Receipt Date: 20090417
  Transmission Date: 20091009
  Serious: Yes (Death)
  Sender: FDA-Public Use
  Company Number: 1-18145570

PATIENT

DRUGS (1)
  1. AMMONUL [Suspect]

REACTIONS (1)
  - DEATH NEONATAL [None]
